FAERS Safety Report 5266941-0 (Version None)
Quarter: 2007Q1

REPORT INFORMATION
  Report Type: 
  Country: None (occurrence: None)
  Receive Date: 20070316
  Receipt Date: 20070306
  Transmission Date: 20070707
  Serious: Yes (Other)
  Sender: FDA-Public Use
  Company Number: HQWYE018127FEB07

PATIENT
  Sex: Female

DRUGS (3)
  1. PREMARIN [Suspect]
     Indication: MENOPAUSE
     Dosage: UNKNOWN
     Route: 048
  2. DUPHASTON [Suspect]
     Indication: MENOPAUSE
     Dosage: UNKNOWN
     Route: 048
  3. PROVERA [Suspect]
     Route: 048

REACTIONS (4)
  - ABDOMINAL PAIN [None]
  - DIARRHOEA [None]
  - HAEMATOCHEZIA [None]
  - INTESTINAL ISCHAEMIA [None]
